FAERS Safety Report 12676875 (Version 1)
Quarter: 2016Q3

REPORT INFORMATION
  Report Type: Report from Study
  Country: TR (occurrence: TR)
  Receive Date: 20160823
  Receipt Date: 20160823
  Transmission Date: 20161109
  Serious: Yes (Other)
  Sender: FDA-Public Use
  Company Number: TR-MYLANLABS-2016M1035355

PATIENT

DRUGS (2)
  1. AMLODIPINE [Interacting]
     Active Substance: AMLODIPINE BESYLATE
     Route: 065
  2. METOPROLOL. [Suspect]
     Active Substance: METOPROLOL
     Route: 065

REACTIONS (2)
  - Bradycardia [Unknown]
  - Drug interaction [Unknown]
